FAERS Safety Report 4883176-1 (Version None)
Quarter: 2006Q1

REPORT INFORMATION
  Report Type: 
  Country: None (occurrence: None)
  Receive Date: 20060117
  Receipt Date: 20060117
  Transmission Date: 20060701
  Serious: Yes (Hospitalization)
  Sender: FDA-Public Use
  Company Number: None

PATIENT
  Age: 76 Year
  Sex: Female

DRUGS (4)
  1. CELEBREX [Suspect]
     Indication: NEUROPATHY
     Dosage: ORAL;100.0 MILLIGRAM
     Route: 048
     Dates: start: 20051204, end: 20051205
  2. CYMBALTA [Suspect]
     Indication: NEUROPATHY
     Dosage: ORAL; 20.0 MILLIGRAM
     Route: 048
     Dates: start: 20051204, end: 20051205
  3. TRIAMTERENE AND HYDROCHLOROTHIAZIDE [Concomitant]
  4. FLUTICASONE PROPIONATE [Concomitant]

REACTIONS (4)
  - BLOOD MAGNESIUM DECREASED [None]
  - DIARRHOEA [None]
  - NAUSEA [None]
  - VOMITING [None]
